FAERS Safety Report 4514050-8 (Version None)
Quarter: 2004Q4

REPORT INFORMATION
  Report Type: 
  Country: None (occurrence: None)
  Receive Date: 20041130
  Receipt Date: 20040622
  Transmission Date: 20050328
  Serious: Yes (Other)
  Sender: FDA-Public Use
  Company Number: FR-GLAXOSMITHKLINE-B0337368A

PATIENT
  Age: 62 Year
  Sex: Female
  Weight: 65 kg

DRUGS (7)
  1. AVANDIA [Suspect]
     Indication: DIABETES MELLITUS NON-INSULIN-DEPENDENT
     Dosage: 4MG PER DAY
     Route: 048
     Dates: start: 20031117
  2. METFORMIN HCL [Suspect]
     Indication: DIABETES MELLITUS NON-INSULIN-DEPENDENT
     Dosage: 850MG THREE TIMES PER DAY
     Route: 048
     Dates: start: 20030324
  3. STAGID [Suspect]
     Indication: DIABETES MELLITUS NON-INSULIN-DEPENDENT
     Dosage: 700MG THREE TIMES PER DAY
     Route: 048
     Dates: start: 19930101, end: 20030323
  4. OESCLIM [Concomitant]
     Dosage: 50MCG TWO TIMES PER WEEK
     Route: 050
     Dates: start: 19930101
  5. SURGESTONE [Concomitant]
     Route: 048
     Dates: start: 19930101
  6. GLUCOR [Concomitant]
     Indication: DIABETES MELLITUS NON-INSULIN-DEPENDENT
     Dosage: 50MG THREE TIMES PER DAY
     Route: 048
     Dates: start: 20000101, end: 20030323
  7. TRIATEC [Concomitant]
     Route: 048

REACTIONS (3)
  - FOLATE DEFICIENCY [None]
  - MACROCYTOSIS [None]
  - VITAMIN B12 DEFICIENCY [None]
